FAERS Safety Report 9814859 (Version 2)
Quarter: 2014Q2

REPORT INFORMATION
  Report Type: Spontaneous
  Country: US (occurrence: US)
  Receive Date: 20140113
  Receipt Date: 20140429
  Transmission Date: 20141212
  Serious: Yes (Death, Hospitalization)
  Sender: FDA-Public Use
  Company Number: US-GLAXOSMITHKLINE-A1056426A

PATIENT
  Sex: Female

DRUGS (1)
  1. AVANDIA [Suspect]
     Indication: DIABETES MELLITUS
     Route: 065

REACTIONS (7)
  - Pneumonia aspiration [Fatal]
  - Cerebrovascular accident [Unknown]
  - Respiratory failure [Unknown]
  - Hypoxic-ischaemic encephalopathy [Unknown]
  - Ischaemic cardiomyopathy [Unknown]
  - Myocardial ischaemia [Unknown]
  - Hypertensive heart disease [Unknown]
